FAERS Safety Report 16405414 (Version 1)
Quarter: 2019Q2

REPORT INFORMATION
  Report Type: Spontaneous
  Country: FR (occurrence: FR)
  Receive Date: 20190607
  Receipt Date: 20190607
  Transmission Date: 20190711
  Serious: Yes (Life-Threatening, Hospitalization)
  Sender: FDA-Public Use
  Company Number: FR-ELI_LILLY_AND_COMPANY-14798177

PATIENT
  Sex: Male

DRUGS (1)
  1. ERBITUX [Suspect]
     Active Substance: CETUXIMAB
     Indication: COLORECTAL CANCER METASTATIC
     Dosage: 900 MG, UNK
     Route: 042
     Dates: start: 20090804, end: 20090804

REACTIONS (5)
  - Infusion related reaction [Recovered/Resolved]
  - Shock [Recovered/Resolved]
  - Hyperhidrosis [Recovered/Resolved]
  - Low cardiac output syndrome [Recovered/Resolved]
  - Cardiac failure [Recovered/Resolved]

NARRATIVE: CASE EVENT DATE: 20090804
